FAERS Safety Report 7712804-8 (Version None)
Quarter: 2011Q3

REPORT INFORMATION
  Report Type: 
  Country: None (occurrence: None)
  Receive Date: 20110826
  Receipt Date: 20110818
  Transmission Date: 20111222
  Serious: Yes (Life-Threatening)
  Sender: FDA-Public Use
  Company Number: FR-GLAXOSMITHKLINE-B0740643A

PATIENT
  Sex: Male

DRUGS (16)
  1. MIRTAZAPINE [Suspect]
     Indication: DEPRESSION
     Dosage: 15MG PER DAY
     Route: 048
     Dates: start: 20110629, end: 20110717
  2. METHOTREXATE [Concomitant]
     Indication: POLYARTHRITIS
     Dosage: 15MG WEEKLY
     Route: 065
  3. ZOFRAN [Suspect]
     Indication: NAUSEA
     Dosage: 4MG THREE TIMES PER DAY
     Route: 048
     Dates: start: 20110623, end: 20110718
  4. RIFADIN [Concomitant]
     Route: 065
     Dates: start: 20110622
  5. PRIMPERAN TAB [Suspect]
     Indication: NAUSEA
     Dosage: 1INJ THREE TIMES PER DAY
     Route: 042
     Dates: start: 20110617, end: 20110719
  6. ALENDRONATE SODIUM [Concomitant]
     Dosage: 1UNIT WEEKLY
     Route: 065
  7. DITROPAN [Concomitant]
     Route: 065
  8. NICARDIPINE HCL [Concomitant]
     Route: 065
  9. LOVENOX [Concomitant]
     Route: 065
  10. DESLORATADINE [Concomitant]
     Route: 065
     Dates: start: 20110630
  11. PIPERACILLIN AND TAZOBACTAM [Suspect]
     Dosage: 6G PER DAY
     Route: 042
     Dates: start: 20110624, end: 20110718
  12. PREDNISONE [Concomitant]
     Dosage: 3MG PER DAY
     Route: 065
  13. SPECIAFOLDINE [Concomitant]
     Route: 065
  14. VANCOMYCIN [Concomitant]
     Route: 065
  15. ZOLPIDEM [Concomitant]
     Route: 065
     Dates: start: 20110629
  16. PANTOPRAZOLE [Concomitant]
     Route: 065
     Dates: start: 20110530

REACTIONS (2)
  - MYOCLONUS [None]
  - CARDIO-RESPIRATORY ARREST [None]
